FAERS Safety Report 10301718 (Version 1)
Quarter: 2014Q3

REPORT INFORMATION
  Report Type: Spontaneous
  Country: US (occurrence: None)
  Receive Date: 20140709
  Receipt Date: 20140709
  Transmission Date: 20150326
  Serious: No
  Sender: FDA-Public Use
  Company Number: None

PATIENT
  Age: 28 Year
  Sex: Male
  Weight: 99.79 kg

DRUGS (1)
  1. VALACYCLOVIR [Suspect]
     Active Substance: VALACYCLOVIR HYDROCHLORIDE
     Indication: APHTHOUS STOMATITIS
     Dosage: 1 TABLET, TWICE DAILY, TAKEN MY MOUTH
     Route: 048
     Dates: start: 20140623, end: 20140630

REACTIONS (2)
  - Depressed mood [None]
  - Disturbance in attention [None]

NARRATIVE: CASE EVENT DATE: 20140630
